FAERS Safety Report 7920253-2 (Version None)
Quarter: 2011Q4

REPORT INFORMATION
  Report Type: 
  Country: None (occurrence: None)
  Receive Date: 20111117
  Receipt Date: 20111107
  Transmission Date: 20120403
  Serious: Yes (Hospitalization, Other)
  Sender: FDA-Public Use
  Company Number: US-BAYER-2011-055008

PATIENT
  Age: 19 Year
  Sex: Female
  Weight: 113.38 kg

DRUGS (8)
  1. PROTONIX [Concomitant]
     Indication: GASTRIC ULCER
     Dosage: UNK
     Dates: start: 20090401
  2. EXCEDRIN (MIGRAINE) [Concomitant]
     Indication: HEADACHE
     Dosage: UNK
     Dates: start: 20090401, end: 20090501
  3. FAMOTIDINE [Concomitant]
     Dosage: UNK
     Dates: start: 20090410, end: 20090507
  4. DROSPIRENONE AND ETHINYL ESTRADIOL [Suspect]
     Indication: ACNE
     Dosage: UNK
     Dates: start: 20090101
  5. YASMIN [Suspect]
     Indication: ACNE
     Dosage: UNK
     Dates: start: 20090101
  6. IBUPROFEN [Concomitant]
     Indication: HEADACHE
     Dosage: UNK
     Dates: start: 20090301
  7. ANTIBIOTICS [Concomitant]
     Dosage: UNK
     Dates: start: 20090501
  8. BISMUTH SUBSALICYLATE [Concomitant]
     Indication: GASTRIC DISORDER
     Dosage: UNK
     Dates: start: 20090301, end: 20090501

REACTIONS (10)
  - JUGULAR VEIN THROMBOSIS [None]
  - CEREBROVASCULAR ACCIDENT [None]
  - CONVULSION [None]
  - CEREBRAL THROMBOSIS [None]
  - SUPERIOR SAGITTAL SINUS THROMBOSIS [None]
  - PAIN [None]
  - TRANSVERSE SINUS THROMBOSIS [None]
  - CEREBRAL INFARCTION [None]
  - HEMIPARESIS [None]
  - GALLBLADDER ENLARGEMENT [None]
